FAERS Safety Report 6357185-X (Version None)
Quarter: 2009Q3

REPORT INFORMATION
  Report Type: 
  Country: None (occurrence: None)
  Receive Date: 20090911
  Receipt Date: 20090902
  Transmission Date: 20100115
  Serious: Yes (Hospitalization, Other)
  Sender: FDA-Public Use
  Company Number: 2008US002017

PATIENT
  Age: 68 Year
  Sex: Female
  Weight: 88.4 kg

DRUGS (1)
  1. AMEVIVE [Suspect]
     Indication: PSORIASIS
     Dosage: 15 MG, WEEKLY, INTRAMUSCULAR
     Route: 030
     Dates: start: 20051112, end: 20060307

REACTIONS (9)
  - ASTHENIA [None]
  - COLLAPSE OF LUNG [None]
  - COUGH [None]
  - DISEASE PROGRESSION [None]
  - FATIGUE [None]
  - FOLLICLE CENTRE LYMPHOMA, FOLLICULAR GRADE I, II, III [None]
  - GASTROINTESTINAL HAEMORRHAGE [None]
  - HAEMATOCRIT DECREASED [None]
  - HAEMOGLOBIN DECREASED [None]
